FAERS Safety Report 4423123-X (Version None)
Quarter: 2004Q3

REPORT INFORMATION
  Report Type: 
  Country: None (occurrence: None)
  Receive Date: 20040806
  Receipt Date: 20040727
  Transmission Date: 20050211
  Serious: No
  Sender: FDA-Public Use
  Company Number: 04H-153-0268402-00

PATIENT
  Sex: 0

DRUGS (3)
  1. LEUCOVORIN CALCIUM [Suspect]
     Indication: CHEMOTHERAPY
     Dosage: 150 MG/M2, FOR 46 HOURS EVERY 2 WEEKS, INTRAVENOUS
     Route: 042
  2. OXALIPLATIN [Suspect]
     Indication: CHEMOTHERAPY
     Dosage: 85 MG/M2, DAY 1 EVERY 2 WEEKS, INTRAVENOUS
     Route: 042
  3. FLUOROURACIL [Suspect]
     Indication: CHEMOTHERAPY
     Dosage: 400 MG/M2, DAY 1 EVERY 2 WEEKS, INTRAVENOUS BOLUS; 3000 MG/M2, FOR 46 HOURS EVERY 2 WEEKS, INTRAVENO
     Route: 040

REACTIONS (3)
  - DRUG TOXICITY [None]
  - LEUKOPENIA [None]
  - PYREXIA [None]
